FAERS Safety Report 9139075 (Version 1)
Quarter: 2013Q1

REPORT INFORMATION
  Report Type: Report from Study
  Country: IT (occurrence: IT)
  Receive Date: 20130305
  Receipt Date: 20130305
  Transmission Date: 20140127
  Serious: Yes (Death, Hospitalization, Disabling)
  Sender: FDA-Public Use
  Company Number: IT-MPIJNJ-2012-08117

PATIENT
  Sex: 0

DRUGS (10)
  1. VELCADE [Suspect]
     Indication: ACUTE LYMPHOCYTIC LEUKAEMIA
     Dosage: 3.84 MG, UNK
     Route: 042
     Dates: start: 20121029, end: 20121105
  2. DEXAMETHASONE [Suspect]
     Indication: ACUTE LYMPHOCYTIC LEUKAEMIA
     Dosage: 99 MG, UNK
     Route: 042
     Dates: start: 20121029, end: 20121107
  3. VINCRISTINE [Suspect]
     Indication: ACUTE LYMPHOCYTIC LEUKAEMIA
     Dosage: 1.45 MG, UNK
     Route: 042
     Dates: start: 20121105, end: 20121105
  4. METHOTREXATE [Suspect]
     Indication: ACUTE LYMPHOCYTIC LEUKAEMIA
     Dosage: 12 MG, UNK
     Route: 065
     Dates: start: 20121029, end: 20121120
  5. MORPHINE [Concomitant]
     Indication: PAIN
     Dosage: 20 MG, UNK
     Route: 042
     Dates: start: 20121026, end: 20121102
  6. MORPHINE [Concomitant]
     Dosage: 30 MG, UNK
     Route: 042
     Dates: start: 20121105, end: 20121105
  7. MORPHINE [Concomitant]
     Dosage: 50 MG, UNK
     Dates: start: 20121106, end: 20121108
  8. MEROPENEM [Concomitant]
     Indication: PYREXIA
     Dosage: 1800 MG, UNK
     Route: 042
     Dates: start: 20121024, end: 20121108
  9. AMPHOTERICIN B [Concomitant]
     Indication: PYREXIA
     Dosage: 100 MG, UNK
     Dates: start: 20121024, end: 20121102
  10. TEICOPLANIN [Concomitant]
     Dosage: 300 MG, UNK
     Route: 042
     Dates: start: 20121024, end: 20121108

REACTIONS (2)
  - Ileus [Fatal]
  - Lung infection [Fatal]
